FAERS Safety Report 6213543-5 (Version None)
Quarter: 2009Q2

REPORT INFORMATION
  Report Type: 
  Country: None (occurrence: None)
  Receive Date: 20090603
  Receipt Date: 20090526
  Transmission Date: 20091009
  Serious: Yes (Hospitalization)
  Sender: FDA-Public Use
  Company Number: ES-WATSON-2009-03763

PATIENT
  Age: 22 Year
  Sex: Female

DRUGS (1)
  1. FORTAMET [Suspect]
     Indication: POLYCYSTIC OVARIES
     Dosage: 850 MG, Q8H
     Route: 048

REACTIONS (1)
  - PANCREATITIS ACUTE [None]
